FAERS Safety Report 25143075 (Version 1)
Quarter: 2025Q2

REPORT INFORMATION
  Report Type: Report from Study
  Country: KW (occurrence: KW)
  Receive Date: 20250401
  Receipt Date: 20250401
  Transmission Date: 20250717
  Serious: Yes (Other)
  Sender: ALEXION PHARMACEUTICALS
  Company Number: KW-AstraZeneca-CH-00836695A

PATIENT

DRUGS (1)
  1. OLAPARIB [Suspect]
     Active Substance: OLAPARIB
     Indication: Breast cancer
     Dosage: 300 MILLIGRAM, Q12H

REACTIONS (1)
  - Malignant neoplasm progression [Unknown]
